FAERS Safety Report 8271524-4 (Version None)
Quarter: 2012Q2

REPORT INFORMATION
  Report Type: 
  Country: None (occurrence: None)
  Receive Date: 20120410
  Receipt Date: 20120404
  Transmission Date: 20120825
  Serious: Yes (Other)
  Sender: FDA-Public Use
  Company Number: US-PFIZER INC-2012018642

PATIENT
  Sex: Female
  Weight: 77.1 kg

DRUGS (5)
  1. LAMICTAL [Concomitant]
     Dosage: UNK
  2. PROTONIX [Suspect]
     Indication: ULCER
     Dosage: 40 MG, 1X/DAY
     Route: 048
     Dates: start: 20111209, end: 20111221
  3. EFFEXOR XR [Concomitant]
     Dosage: UNK
  4. ADDERALL 5 [Concomitant]
     Dosage: UNK
  5. PROTONIX [Suspect]
     Indication: GASTROOESOPHAGEAL REFLUX DISEASE

REACTIONS (5)
  - PAIN IN EXTREMITY [None]
  - MYALGIA [None]
  - WITHDRAWAL SYNDROME [None]
  - BONE PAIN [None]
  - ARTHRALGIA [None]
